FAERS Safety Report 14094606 (Version 1)
Quarter: 2017Q4

REPORT INFORMATION
  Report Type: Spontaneous
  Country: FR (occurrence: FR)
  Receive Date: 20171016
  Receipt Date: 20171016
  Transmission Date: 20180321
  Serious: Yes (Death, Hospitalization, Other)
  Sender: FDA-Public Use
  Company Number: FR-SA-2017SA198601

PATIENT
  Age: 75 Year
  Sex: Female

DRUGS (4)
  1. BISOPROLOL [Concomitant]
     Active Substance: BISOPROLOL
     Route: 065
  2. LEVOTHYROXINE. [Concomitant]
     Active Substance: LEVOTHYROXINE
     Route: 065
  3. PREDNISONE. [Suspect]
     Active Substance: PREDNISONE
     Route: 065
  4. LEFLUNOMIDE. [Suspect]
     Active Substance: LEFLUNOMIDE
     Route: 065

REACTIONS (12)
  - Septic shock [Fatal]
  - Hyporeflexia [Unknown]
  - Fatigue [Unknown]
  - Polyneuropathy [Unknown]
  - Lethargy [Unknown]
  - Diarrhoea [Recovering/Resolving]
  - Guillain-Barre syndrome [Fatal]
  - Hypovolaemic shock [Recovering/Resolving]
  - Acute kidney injury [Unknown]
  - Intestinal perforation [Fatal]
  - Asthenia [Unknown]
  - Hyperkalaemia [Unknown]
